FAERS Safety Report 16915014 (Version 2)
Quarter: 2019Q4

REPORT INFORMATION
  Report Type: Spontaneous
  Country: FR (occurrence: FR)
  Receive Date: 20191014
  Receipt Date: 20191016
  Transmission Date: 20200122
  Serious: Yes (Other)
  Sender: FDA-Public Use
  Company Number: FR-009507513-1811FRA007360

PATIENT
  Age: 29 Year
  Sex: Female
  Weight: 66 kg

DRUGS (2)
  1. M-M-RVAXPRO [Suspect]
     Active Substance: MEASLES VIRUS STRAIN ENDERS^ ATTENUATED EDMONSTON LIVE ANTIGEN\MUMPS VIRUS STRAIN B LEVEL JERYL LYNN LIVE ANTIGEN\RUBELLA VIRUS STRAIN WISTAR RA 27/3 LIVE ANTIGEN
     Indication: PROPHYLAXIS
     Dates: start: 201808
  2. NEXPLANON [Suspect]
     Active Substance: ETONOGESTREL
     Dosage: THE IMPLANT
     Route: 059
     Dates: start: 20160126, end: 20181017

REACTIONS (7)
  - Psoriasis [Unknown]
  - Exposure during pregnancy [Recovered/Resolved]
  - Pain [Unknown]
  - Anaemia [Unknown]
  - Pregnancy with implant contraceptive [Recovered/Resolved]
  - Cough [Unknown]
  - Unintended pregnancy [Recovered/Resolved]

NARRATIVE: CASE EVENT DATE: 20181011
